FAERS Safety Report 16204758 (Version 2)
Quarter: 2019Q2

REPORT INFORMATION
  Report Type: Report from Study
  Country: GB (occurrence: GB)
  Receive Date: 20190416
  Receipt Date: 20190607
  Transmission Date: 20190711
  Serious: Yes (Other)
  Sender: FDA-Public Use
  Company Number: PHHY2019GB086344

PATIENT
  Sex: Female

DRUGS (1)
  1. GILENYA [Suspect]
     Active Substance: FINGOLIMOD HYDROCHLORIDE
     Indication: MULTIPLE SCLEROSIS
     Dosage: 0.5 MG, QD
     Route: 048

REACTIONS (8)
  - Stress [Unknown]
  - Depressed mood [Unknown]
  - Asthenia [Unknown]
  - Sleep deficit [Unknown]
  - Myocardial infarction [Unknown]
  - Anaemia [Unknown]
  - Blood pressure increased [Unknown]
  - Diplopia [Unknown]
